FAERS Safety Report 23516290 (Version 2)
Quarter: 2024Q1

REPORT INFORMATION
  Report Type: Spontaneous
  Country: JP (occurrence: None)
  Receive Date: 20240213
  Receipt Date: 20240305
  Transmission Date: 20240409
  Serious: Yes (Other)
  Sender: FDA-Public Use
  Company Number: JP-Unichem Pharmaceuticals (USA) Inc-UCM202402-000115

PATIENT
  Age: 26 Year
  Sex: Female

DRUGS (8)
  1. DIVALPROEX SODIUM [Suspect]
     Active Substance: DIVALPROEX SODIUM
     Indication: Epilepsy
  2. QUETIAPINE [Suspect]
     Active Substance: QUETIAPINE
     Indication: Epilepsy
  3. RISPERIDONE [Concomitant]
     Active Substance: RISPERIDONE
     Indication: Epilepsy
  4. CHLORPROMAZINE [Concomitant]
     Active Substance: CHLORPROMAZINE
     Indication: Epilepsy
  5. TOPIRAMATE [Concomitant]
     Active Substance: TOPIRAMATE
     Indication: Epilepsy
  6. RAMELTEON [Concomitant]
     Active Substance: RAMELTEON
     Indication: Epilepsy
  7. SUVOREXANT [Concomitant]
     Active Substance: SUVOREXANT
     Indication: Epilepsy
  8. ETIZOLAM [Concomitant]
     Active Substance: ETIZOLAM
     Indication: Epilepsy
     Dosage: UNKNOWN

REACTIONS (4)
  - Hypothyroidism [Recovered/Resolved]
  - Central hypothyroidism [Recovered/Resolved]
  - Amenorrhoea [Recovered/Resolved]
  - Weight increased [Recovered/Resolved]
